FAERS Safety Report 12662819 (Version 1)
Quarter: 2016Q3

REPORT INFORMATION
  Report Type: Spontaneous
  Country: FR (occurrence: FR)
  Receive Date: 20160818
  Receipt Date: 20160818
  Transmission Date: 20161109
  Serious: Yes (Hospitalization)
  Sender: FDA-Public Use
  Company Number: FR-PFIZER INC-2016382599

PATIENT
  Age: 33 Year
  Sex: Male

DRUGS (14)
  1. ETHAMBUTOL [Suspect]
     Active Substance: ETHAMBUTOL HYDROCHLORIDE
     Indication: MYCOBACTERIAL INFECTION
     Dosage: UNK
     Dates: start: 20160530
  2. PREZISTA [Concomitant]
     Active Substance: DARUNAVIR ETHANOLATE
     Dosage: UNK
     Dates: start: 20160407, end: 20160616
  3. TRAMADOL. [Concomitant]
     Active Substance: TRAMADOL
     Indication: NEURALGIA
     Dosage: UNK
     Dates: start: 20160530, end: 20160614
  4. OFLOXACINE [Concomitant]
     Active Substance: OFLOXACIN
     Dosage: UNK
     Route: 048
     Dates: start: 20160406
  5. LYRICA [Suspect]
     Active Substance: PREGABALIN
     Indication: NEURALGIA
     Dosage: UNK
     Dates: start: 20160530
  6. RIFAMYCINE /00047701/ [Suspect]
     Active Substance: RIFAMYCIN
     Indication: MYCOBACTERIAL INFECTION
     Dosage: UNK
     Dates: start: 20160530
  7. PIRILENE [Suspect]
     Active Substance: PYRAZINAMIDE
     Indication: MYCOBACTERIAL INFECTION
     Dosage: UNK
     Dates: start: 20160530
  8. ISENTRESS [Concomitant]
     Active Substance: RALTEGRAVIR POTASSIUM
     Dosage: UNK
     Dates: start: 20160407, end: 20160614
  9. NORVIR [Concomitant]
     Active Substance: RITONAVIR
     Dosage: UNK
     Dates: start: 20160407, end: 20160616
  10. RIMACTAN /00146901/ [Concomitant]
     Active Substance: RIFAMPIN
     Dosage: UNK
     Dates: start: 20160530, end: 20160614
  11. CLARITHROMYCINE [Suspect]
     Active Substance: CLARITHROMYCIN
     Indication: MYCOBACTERIAL INFECTION
     Dosage: UNK
     Dates: start: 20160530
  12. RIMIFON [Suspect]
     Active Substance: ISONIAZID
     Indication: MYCOBACTERIAL INFECTION
     Dosage: UNK
     Dates: start: 20160530
  13. LAMIVUDINE. [Concomitant]
     Active Substance: LAMIVUDINE
     Dosage: UNK
     Dates: start: 20160407, end: 20160614
  14. PARACETAMOL [Concomitant]
     Active Substance: ACETAMINOPHEN
     Indication: NEURALGIA
     Dosage: UNK
     Dates: start: 20160530, end: 20160614

REACTIONS (8)
  - Agranulocytosis [Recovered/Resolved]
  - Tubulointerstitial nephritis [None]
  - Leukopenia [None]
  - Urinary tract infection [None]
  - Inappropriate antidiuretic hormone secretion [None]
  - Neutropenia [Recovered/Resolved]
  - Thrombotic microangiopathy [None]
  - Hepatitis [None]

NARRATIVE: CASE EVENT DATE: 20160614
